FAERS Safety Report 4793539-0 (Version None)
Quarter: 2005Q4

REPORT INFORMATION
  Report Type: 
  Country: None (occurrence: None)
  Receive Date: 20051006
  Receipt Date: 20050607
  Transmission Date: 20060501
  Serious: Yes (Hospitalization)
  Sender: FDA-Public Use
  Company Number: 2005085756

PATIENT
  Age: 35 Year
  Sex: Male
  Weight: 90.7194 kg

DRUGS (4)
  1. DOXORUBICIN HYDROCHLORIDE [Suspect]
     Indication: HODGKIN'S DISEASE
     Dosage: INTRAVENOUS
     Route: 042
     Dates: start: 20041101
  2. BLEOMYCIN [Concomitant]
  3. VINBLASTINE SULFATE [Concomitant]
  4. DACARBAZINE [Concomitant]

REACTIONS (3)
  - EXTRAVASATION [None]
  - IMPAIRED HEALING [None]
  - PAIN [None]
